FAERS Safety Report 5243292-1 (Version None)
Quarter: 2007Q1

REPORT INFORMATION
  Report Type: 
  Country: None (occurrence: None)
  Receive Date: 20070215
  Receipt Date: 20070202
  Transmission Date: 20070707
  Serious: Yes (Hospitalization)
  Sender: FDA-Public Use
  Company Number: 2007-00719

PATIENT
  Age: 46 Year
  Sex: Male

DRUGS (3)
  1. FORTAMET [Suspect]
     Indication: DIABETES MELLITUS NON-INSULIN-DEPENDENT
     Dosage: 56 G, OVER 4 HRS, ORAL
     Route: 048
  2. RAMIPRIL [Suspect]
     Indication: HYPERTENSION
     Dosage: 35 MG, OVER 4 HRS, ORAL
     Route: 048
  3. ALCOHOL (ETHANOL) [Concomitant]

REACTIONS (5)
  - CARDIO-RESPIRATORY ARREST [None]
  - COMPARTMENT SYNDROME [None]
  - LACTIC ACIDOSIS [None]
  - OVERDOSE [None]
  - RHABDOMYOLYSIS [None]
